FAERS Safety Report 15111801 (Version 1)
Quarter: 2018Q3

REPORT INFORMATION
  Report Type: Spontaneous
  Country: US (occurrence: US)
  Receive Date: 20180705
  Receipt Date: 20180705
  Transmission Date: 20181010
  Serious: Yes (Death, Hospitalization)
  Sender: FDA-Public Use
  Company Number: US-BAYER-2018-062120

PATIENT
  Age: 58 Year
  Sex: Female

DRUGS (3)
  1. XARELTO [Suspect]
     Active Substance: RIVAROXABAN
     Indication: DEEP VEIN THROMBOSIS
  2. XARELTO [Suspect]
     Active Substance: RIVAROXABAN
     Indication: PULMONARY EMBOLISM
     Dosage: 15 MG, BID
     Route: 048
     Dates: start: 20150330, end: 20150401
  3. BAYER ASPIRIN [Suspect]
     Active Substance: ASPIRIN
     Indication: PRODUCT USED FOR UNKNOWN INDICATION
     Dosage: 81 MG, QD
     Route: 048

REACTIONS (8)
  - Intestinal ischaemia [Recovering/Resolving]
  - Retroperitoneal haematoma [Recovering/Resolving]
  - Ischaemic hepatitis [Recovering/Resolving]
  - Acute kidney injury [Recovered/Resolved]
  - Gastrointestinal haemorrhage [Recovering/Resolving]
  - Thrombocytopenia [Recovering/Resolving]
  - Encephalopathy [Recovering/Resolving]
  - Hypovolaemic shock [Recovering/Resolving]

NARRATIVE: CASE EVENT DATE: 201504
